FAERS Safety Report 18394528 (Version 1)
Quarter: 2020Q4

REPORT INFORMATION
  Report Type: Spontaneous
  Country: FR (occurrence: FR)
  Receive Date: 20201017
  Receipt Date: 20201017
  Transmission Date: 20210114
  Serious: Yes (Hospitalization)
  Sender: FDA-Public Use
  Company Number: NVSC2020FR275734

PATIENT
  Age: 21 Day
  Sex: Female

DRUGS (1)
  1. VANCOMYCIN [Suspect]
     Active Substance: VANCOMYCIN
     Indication: NEONATAL INFECTION
     Dosage: UNK
     Route: 042
     Dates: start: 20200915

REACTIONS (2)
  - Lymphadenopathy [Not Recovered/Not Resolved]
  - Eosinophilia [Recovered/Resolved]

NARRATIVE: CASE EVENT DATE: 20200915
